FAERS Safety Report 4731701-3 (Version None)
Quarter: 2005Q3

REPORT INFORMATION
  Report Type: 
  Country: None (occurrence: None)
  Receive Date: 20050802
  Receipt Date: 20050802
  Transmission Date: 20060218
  Serious: Yes (Hospitalization)
  Sender: FDA-Public Use
  Company Number: None

PATIENT
  Age: 53 Year
  Sex: Male
  Weight: 107.0489 kg

DRUGS (2)
  1. TEQUIN [Suspect]
     Indication: SINUSITIS
     Dosage: 40 MG PO DAILY X 2 WEEKS
     Route: 048
  2. PREDNISONE [Concomitant]

REACTIONS (2)
  - HYPERGLYCAEMIA [None]
  - LUNG DISORDER [None]
